FAERS Safety Report 21081656 (Version 3)
Quarter: 2022Q4

REPORT INFORMATION
  Report Type: Spontaneous
  Country: JP (occurrence: JP)
  Receive Date: 20220714
  Receipt Date: 20221101
  Transmission Date: 20230112
  Serious: Yes (Hospitalization, Other)
  Sender: FDA-Public Use
  Company Number: JP-PFIZER INC-PV202200016020

PATIENT
  Age: 67 Year
  Sex: Female
  Weight: 52.5 kg

DRUGS (1)
  1. EFFEXOR XR [Suspect]
     Active Substance: VENLAFAXINE HYDROCHLORIDE
     Indication: Depression
     Dosage: 150 MG, DAILY
     Route: 048

REACTIONS (3)
  - Altered state of consciousness [Recovered/Resolved]
  - Clonus [Recovered/Resolved]
  - Delirium [Recovered/Resolved]
